FAERS Safety Report 18035587 (Version 2)
Quarter: 2020Q3

REPORT INFORMATION
  Report Type: Spontaneous
  Country: JP (occurrence: JP)
  Receive Date: 20200717
  Receipt Date: 20200811
  Transmission Date: 20201103
  Serious: No
  Sender: FDA-Public Use
  Company Number: JP-TEVA-2020-JP-004482J

PATIENT
  Age: 79 Year
  Sex: Male

DRUGS (7)
  1. CILNIDIPINE [Concomitant]
     Active Substance: CILNIDIPINE
  2. FENOFIBRATE TABLET 53.3MG  TAKEDA TEVA [Suspect]
     Active Substance: FENOFIBRATE
     Indication: HYPERLIPIDAEMIA
     Dosage: 106.6 MILLIGRAM DAILY;
     Route: 048
     Dates: start: 201808, end: 20200804
  3. GLIMEPIRIDE. [Concomitant]
     Active Substance: GLIMEPIRIDE
  4. GLACTIV [Concomitant]
     Active Substance: SITAGLIPTIN
  5. OLMETEC [Concomitant]
     Active Substance: OLMESARTAN MEDOXOMIL
  6. SEIBULE [Concomitant]
     Active Substance: MIGLITOL
  7. PIOGLITAZONE. [Concomitant]
     Active Substance: PIOGLITAZONE

REACTIONS (4)
  - Product substitution issue [Unknown]
  - Renal disorder [Not Recovered/Not Resolved]
  - Creatinine renal clearance decreased [Unknown]
  - Blood creatinine increased [Not Recovered/Not Resolved]

NARRATIVE: CASE EVENT DATE: 20190612
